FAERS Safety Report 5174226-6 (Version None)
Quarter: 2006Q4

REPORT INFORMATION
  Report Type: 
  Country: None (occurrence: None)
  Receive Date: 20061206
  Receipt Date: 20061130
  Transmission Date: 20070319
  Serious: Yes (Other)
  Sender: FDA-Public Use
  Company Number: 233266

PATIENT
  Age: 4 Year
  Sex: Female

DRUGS (3)
  1. RITUXIMAB(RITUXIMAB) CONC FOR SOLUTION FOR INFUSION [Suspect]
     Indication: OPSOCLONUS MYOCLONUS
     Dosage: 375 MG/M2, 1/WEEK,
  2. IMMUNE GLOBULIN INTRAVENOUS (HUMAN) [Concomitant]
  3. CORTICOTROPIN (CORTICOTROPIN) [Concomitant]

REACTIONS (1)
  - NEUROBLASTOMA [None]
